FAERS Safety Report 4329735-6 (Version None)
Quarter: 2004Q2

REPORT INFORMATION
  Report Type: 
  Country: None (occurrence: None)
  Receive Date: 20040401
  Receipt Date: 20040329
  Transmission Date: 20050107
  Serious: Yes (Death, Hospitalization)
  Sender: FDA-Public Use
  Company Number: US-GLAXOSMITHKLINE-A0504853A

PATIENT
  Age: 57 Year
  Sex: Female

DRUGS (3)
  1. MELPHALAN [Suspect]
     Indication: MULTIPLE MYELOMA
     Route: 042
     Dates: start: 20031117, end: 20040201
  2. THALOMID [Suspect]
     Indication: MULTIPLE MYELOMA
     Dosage: 400MG PER DAY
     Route: 048
     Dates: start: 20030804
  3. FLAGYL [Concomitant]
     Indication: INFECTION
     Dates: end: 20040127

REACTIONS (8)
  - CLOSTRIDIAL INFECTION [None]
  - CONVULSION [None]
  - DEATH [None]
  - DIPHTHERIA [None]
  - DYSPNOEA EXACERBATED [None]
  - ISCHAEMIA [None]
  - PNEUMOCYSTIS CARINII PNEUMONIA [None]
  - PYREXIA [None]
